FAERS Safety Report 12315298 (Version 1)
Quarter: 2016Q2

REPORT INFORMATION
  Report Type: Spontaneous
  Country: FR (occurrence: FR)
  Receive Date: 20160428
  Receipt Date: 20160428
  Transmission Date: 20160815
  Serious: Yes (Other)
  Sender: FDA-Public Use
  Company Number: FR-ASTRAZENECA-2016SE44029

PATIENT
  Age: 22789 Day
  Sex: Female

DRUGS (11)
  1. BACTRIM [Concomitant]
     Active Substance: SULFAMETHOXAZOLE\TRIMETHOPRIM
  2. SEROPLEX [Suspect]
     Active Substance: ESCITALOPRAM OXALATE
     Route: 048
     Dates: start: 2015
  3. ZELITREX [Concomitant]
     Active Substance: VALACYCLOVIR HYDROCHLORIDE
  4. INEXIUM [Suspect]
     Active Substance: ESOMEPRAZOLE
     Indication: CHEST DISCOMFORT
     Route: 048
     Dates: start: 2015
  5. XYZALL [Suspect]
     Active Substance: LEVOCETIRIZINE DIHYDROCHLORIDE
     Indication: RASH
     Dosage: IF NEEDED
     Route: 048
     Dates: start: 2015
  6. ISTODAX [Suspect]
     Active Substance: ROMIDEPSIN
     Indication: LYMPHOMA
     Route: 042
  7. NEORECORMON [Concomitant]
     Active Substance: ERYTHROPOIETIN
  8. GRANOCYTE [Concomitant]
     Active Substance: LENOGRASTIM
  9. DEXAMETHASONE. [Concomitant]
     Active Substance: DEXAMETHASONE
  10. GAVISCON [Suspect]
     Active Substance: ALUMINUM HYDROXIDE\MAGNESIUM CARBONATE
     Indication: CHEST DISCOMFORT
     Route: 048
     Dates: start: 20151204
  11. ISTODAX [Suspect]
     Active Substance: ROMIDEPSIN
     Indication: LYMPHOMA
     Route: 042
     Dates: start: 20151216, end: 20151216

REACTIONS (2)
  - Malignant neoplasm progression [Unknown]
  - Thrombocytopenia [Recovered/Resolved]

NARRATIVE: CASE EVENT DATE: 20151029
